FAERS Safety Report 8433659-2 (Version None)
Quarter: 2012Q2

REPORT INFORMATION
  Report Type: 
  Country: None (occurrence: None)
  Receive Date: 20120613
  Receipt Date: 20120605
  Transmission Date: 20120825
  Serious: Yes (Death, Life-Threatening, Hospitalization)
  Sender: FDA-Public Use
  Company Number: PT-ROXANE LABORATORIES, INC.-2012-RO-01365RO

PATIENT
  Age: 81 Year
  Sex: Male

DRUGS (4)
  1. ASPIRIN [Suspect]
     Indication: MYOCARDIAL INFARCTION
     Dosage: 100 MG
  2. ASPIRIN [Suspect]
     Indication: CORONARY ARTERIAL STENT INSERTION
  3. CLOPIDOGREL [Suspect]
     Indication: MYOCARDIAL INFARCTION
     Dosage: 75 MG
  4. CLOPIDOGREL [Suspect]
     Indication: CORONARY ARTERIAL STENT INSERTION

REACTIONS (3)
  - CEREBELLAR HAEMORRHAGE [None]
  - SUBDURAL HAEMATOMA [None]
  - ROAD TRAFFIC ACCIDENT [None]
